FAERS Safety Report 7724713-9 (Version None)
Quarter: 2011Q3

REPORT INFORMATION
  Report Type: 
  Country: None (occurrence: None)
  Receive Date: 20110901
  Receipt Date: 20110830
  Transmission Date: 20111222
  Serious: Yes (Hospitalization)
  Sender: FDA-Public Use
  Company Number: US-CEPHALON-2011004567

PATIENT
  Sex: Female
  Weight: 69 kg

DRUGS (3)
  1. ALLERGY TABLET [Concomitant]
  2. RITUXAN [Concomitant]
     Indication: B-CELL LYMPHOMA
     Dates: start: 20050101
  3. TREANDA [Suspect]
     Indication: B-CELL LYMPHOMA
     Route: 042
     Dates: start: 20110804

REACTIONS (4)
  - INCORRECT DRUG ADMINISTRATION DURATION [None]
  - INFUSION SITE EXTRAVASATION [None]
  - PYREXIA [None]
  - INFUSION SITE CELLULITIS [None]
